FAERS Safety Report 11088482 (Version 1)
Quarter: 2015Q2

REPORT INFORMATION
  Report Type: Other
  Country: GB (occurrence: GB)
  Receive Date: 20150504
  Receipt Date: 20150504
  Transmission Date: 20150821
  Serious: Yes (Disabling, Other)
  Sender: FDA-Public Use
  Company Number: GB-MYLANLABS-2015M1013253

PATIENT

DRUGS (15)
  1. ALENDRONIC ACID [Concomitant]
     Active Substance: ALENDRONIC ACID
     Dosage: 70 MG, QW
  2. LAMOTRIGINE. [Suspect]
     Active Substance: LAMOTRIGINE
     Indication: TEMPORAL LOBE EPILEPSY
     Dosage: 200 MG, BID
     Route: 048
     Dates: start: 1998
  3. VENTOLIN [Concomitant]
     Active Substance: ALBUTEROL SULFATE
     Dosage: 200 ?G, Q4H (IF REQUIRED)
     Route: 055
  4. CALCIUM AND COLECALCIFEROL [Concomitant]
     Dosage: 1500 MG, BID
  5. LACTULOSE. [Concomitant]
     Active Substance: LACTULOSE
     Dosage: 10 TO 25 ML , BID
     Route: 048
  6. OMEPRAZOLE. [Concomitant]
     Active Substance: OMEPRAZOLE
     Dosage: 20 MG, BID (WHEN REQUIRED)
  7. LEVEMIR [Concomitant]
     Active Substance: INSULIN DETEMIR
     Dosage: 100UNITS/ML, USE AS DIRECTED
  8. BUDESONIDE AND FORMOTEROL FUMARATE [Concomitant]
     Dosage: 2 DF, BID (400MCG/6MCG PER DOSE)
     Route: 055
  9. LOSARTAN [Concomitant]
     Active Substance: LOSARTAN
     Dosage: 50 MG, QD
  10. CITALOPRAM [Concomitant]
     Active Substance: CITALOPRAM HYDROBROMIDE
     Dosage: 20 MG, UNK (USE AS DIRECTED)
  11. HUMALOG [Concomitant]
     Active Substance: INSULIN LISPRO
     Dosage: 100UNITS/ML, AS DIRECTED
  12. NAPROXEN. [Concomitant]
     Active Substance: NAPROXEN
     Dosage: 500 MG, BID
  13. TRAMADOL [Concomitant]
     Active Substance: TRAMADOL
     Dosage: 50 MG,(1 TO 2 FOUR TIMES A DAY AS NECESSARY)
  14. ATORVASTATIN [Concomitant]
     Active Substance: ATORVASTATIN
     Dosage: 40 MG, QD (AT BEDTIME)
  15. PARACETAMOL [Concomitant]
     Active Substance: ACETAMINOPHEN
     Dosage: 500 MG, (TAKE 2 FOUR TIMES A DAY)

REACTIONS (5)
  - Joint dislocation [Not Recovered/Not Resolved]
  - Fibula fracture [Not Recovered/Not Resolved]
  - Radius fracture [Not Recovered/Not Resolved]
  - Osteopenia [Unknown]
  - Foot fracture [Not Recovered/Not Resolved]

NARRATIVE: CASE EVENT DATE: 20130905
